FAERS Safety Report 4907983-1 (Version None)
Quarter: 2006Q1

REPORT INFORMATION
  Report Type: 
  Country: None (occurrence: None)
  Receive Date: 20060207
  Receipt Date: 20060131
  Transmission Date: 20060701
  Serious: Yes (Life-Threatening, Hospitalization, Other)
  Sender: FDA-Public Use
  Company Number: 220534

PATIENT
  Age: 57 Year
  Sex: Female
  Weight: 57.6 kg

DRUGS (3)
  1. HERCEPTIN (TRASTUZUMAB)PWDR + SOLVENT, INFUSION SOLN, 440MG [Suspect]
     Indication: BREAST CANCER METASTATIC
     Dosage: 6 MG/KG, Q3W, INTRAVENOUS
     Route: 042
     Dates: start: 19980101, end: 20050901
  2. TRENTAL [Concomitant]
  3. MULTIVITAMIN (MULTIVITAMINS NOS) [Concomitant]

REACTIONS (3)
  - DIALYSIS [None]
  - HEPATITIS ALCOHOLIC [None]
  - HEPATORENAL SYNDROME [None]
